FAERS Safety Report 12996124 (Version 1)
Quarter: 2016Q4

REPORT INFORMATION
  Report Type: Spontaneous
  Country: CA (occurrence: CA)
  Receive Date: 20161202
  Receipt Date: 20161202
  Transmission Date: 20170207
  Serious: Yes (Other)
  Sender: FDA-Public Use
  Company Number: CA-JNJFOC-20161126730

PATIENT
  Sex: Male

DRUGS (2)
  1. MOTRIN IB [Suspect]
     Active Substance: IBUPROFEN
     Route: 065
  2. MOTRIN IB [Suspect]
     Active Substance: IBUPROFEN
     Indication: PRODUCT USED FOR UNKNOWN INDICATION
     Route: 065
     Dates: start: 20161122

REACTIONS (13)
  - Pallor [Unknown]
  - Blood pressure decreased [Unknown]
  - Lip swelling [Unknown]
  - Eye swelling [Unknown]
  - Rash pruritic [Unknown]
  - Nausea [Unknown]
  - Hyperhidrosis [Unknown]
  - Balance disorder [Unknown]
  - Tunnel vision [Unknown]
  - Dizziness [Unknown]
  - Heart rate decreased [Unknown]
  - Dysstasia [Unknown]
  - Incoherent [Unknown]

NARRATIVE: CASE EVENT DATE: 20161122
